FAERS Safety Report 13149225 (Version 2)
Quarter: 2017Q1

REPORT INFORMATION
  Report Type: Report from Study
  Country: US (occurrence: US)
  Receive Date: 20170124
  Receipt Date: 20170124
  Transmission Date: 20170428
  Serious: No
  Sender: FDA-Public Use
  Company Number: US-AMGEN-USASL2016171222

PATIENT
  Age: 79 Year
  Sex: Male
  Weight: 91.61 kg

DRUGS (1)
  1. REPATHA [Suspect]
     Active Substance: EVOLOCUMAB
     Indication: DRUG HYPERSENSITIVITY
     Dosage: 140 MG, Q2WK
     Route: 065
     Dates: start: 201602

REACTIONS (3)
  - Injection site pain [Recovered/Resolved]
  - Injection site discolouration [Unknown]
  - Injection site mass [Unknown]

NARRATIVE: CASE EVENT DATE: 2016
